FAERS Safety Report 23872919 (Version 3)
Quarter: 2024Q3

REPORT INFORMATION
  Report Type: Spontaneous
  Country: PL (occurrence: PL)
  Receive Date: 20240520
  Receipt Date: 20240808
  Transmission Date: 20241016
  Serious: Yes (Other)
  Sender: TAKEDA
  Company Number: PL-TAKEDA-2024TUS048511

PATIENT
  Age: 9 Year
  Sex: Male

DRUGS (17)
  1. ANTIHEMOPHILIC FACTOR, HUMAN RECOMBINANT [Suspect]
     Active Substance: ANTIHEMOPHILIC FACTOR, HUMAN RECOMBINANT
     Indication: Factor VIII deficiency
     Dosage: 25 INTERNATIONAL UNIT/KILOGRAM, 1/WEEK
     Route: 065
     Dates: start: 201509
  2. ANTIHEMOPHILIC FACTOR, HUMAN RECOMBINANT [Suspect]
     Active Substance: ANTIHEMOPHILIC FACTOR, HUMAN RECOMBINANT
     Indication: Factor VIII deficiency
     Dosage: 25 INTERNATIONAL UNIT/KILOGRAM, 1/WEEK
     Route: 065
     Dates: start: 201509
  3. ANTIHEMOPHILIC FACTOR, HUMAN RECOMBINANT [Suspect]
     Active Substance: ANTIHEMOPHILIC FACTOR, HUMAN RECOMBINANT
     Indication: Factor VIII deficiency
     Dosage: 25 INTERNATIONAL UNIT/KILOGRAM, 1/WEEK
     Route: 065
     Dates: start: 201509
  4. ANTIHEMOPHILIC FACTOR, HUMAN RECOMBINANT [Suspect]
     Active Substance: ANTIHEMOPHILIC FACTOR, HUMAN RECOMBINANT
     Dosage: 100 INTERNATIONAL UNIT/KILOGRAM, BID
     Route: 065
     Dates: start: 201602
  5. ANTIHEMOPHILIC FACTOR, HUMAN RECOMBINANT [Suspect]
     Active Substance: ANTIHEMOPHILIC FACTOR, HUMAN RECOMBINANT
     Dosage: 100 INTERNATIONAL UNIT/KILOGRAM, BID
     Route: 065
     Dates: start: 201602
  6. ANTIHEMOPHILIC FACTOR, HUMAN RECOMBINANT [Suspect]
     Active Substance: ANTIHEMOPHILIC FACTOR, HUMAN RECOMBINANT
     Dosage: 100 INTERNATIONAL UNIT/KILOGRAM, BID
     Route: 065
     Dates: start: 201602
  7. ANTIHEMOPHILIC FACTOR, HUMAN RECOMBINANT [Suspect]
     Active Substance: ANTIHEMOPHILIC FACTOR, HUMAN RECOMBINANT
     Dosage: 100 INTERNATIONAL UNIT/KILOGRAM, BID
     Route: 065
     Dates: start: 201710, end: 201901
  8. ANTIHEMOPHILIC FACTOR, HUMAN RECOMBINANT [Suspect]
     Active Substance: ANTIHEMOPHILIC FACTOR, HUMAN RECOMBINANT
     Dosage: 100 INTERNATIONAL UNIT/KILOGRAM, BID
     Route: 065
     Dates: start: 201710, end: 201901
  9. ANTIHEMOPHILIC FACTOR, HUMAN RECOMBINANT [Suspect]
     Active Substance: ANTIHEMOPHILIC FACTOR, HUMAN RECOMBINANT
     Dosage: 100 INTERNATIONAL UNIT/KILOGRAM, BID
     Route: 065
     Dates: start: 201710, end: 201901
  10. FEIBA NF [Suspect]
     Active Substance: ANTI-INHIBITOR COAGULANT COMPLEX
     Indication: Haemorrhage prophylaxis
     Dosage: 75 INTERNATIONAL UNIT/KILOGRAM, 3/WEEK
     Route: 065
     Dates: start: 201612
  11. FEIBA NF [Suspect]
     Active Substance: ANTI-INHIBITOR COAGULANT COMPLEX
     Dosage: 100 INTERNATIONAL UNIT/KILOGRAM, QD
     Route: 065
     Dates: start: 201901
  12. EFMOROCTOCOG ALFA [Suspect]
     Active Substance: EFMOROCTOCOG ALFA
     Indication: Factor VIII deficiency
     Dosage: 100 INTERNATIONAL UNIT/KILOGRAM, QD
     Route: 065
     Dates: start: 201702, end: 201710
  13. ANTIHEMOPHILIC FACTOR, HUMAN RECOMBINANT RESIDUES 743-1636 DELETED [Suspect]
     Active Substance: ANTIHEMOPHILIC FACTOR, HUMAN RECOMBINANT RESIDUES 743-1636 DELETED
     Indication: Factor VIII deficiency
     Dosage: 100 INTERNATIONAL UNIT/KILOGRAM, BID
     Route: 065
     Dates: start: 201602
  14. COAGULATION FACTOR VIIA RECOMBINANT HUMAN [Concomitant]
     Active Substance: COAGULATION FACTOR VIIA RECOMBINANT HUMAN
     Indication: Haemorrhage
     Dosage: UNK
     Route: 065
  15. ANTIHEMOPHILIC FACTOR, HUMAN RECOMBINANT [Concomitant]
     Active Substance: ANTIHEMOPHILIC FACTOR, HUMAN RECOMBINANT
     Indication: Immune tolerance induction
     Dosage: 100 INTERNATIONAL UNIT/KILOGRAM, BID
     Route: 065
     Dates: start: 201710, end: 201901
  16. EMICIZUMAB [Concomitant]
     Active Substance: EMICIZUMAB
     Indication: Haemorrhage prophylaxis
     Dosage: UNK
     Route: 058
     Dates: start: 202003
  17. EMICIZUMAB [Concomitant]
     Active Substance: EMICIZUMAB
     Dosage: UNK, UNK, Q2WEEKS
     Route: 058

REACTIONS (3)
  - Anti factor VIII antibody increased [Unknown]
  - Drug ineffective [Unknown]
  - Product use issue [Unknown]

NARRATIVE: CASE EVENT DATE: 20160201
